FAERS Safety Report 9459471 (Version 1)
Quarter: 2013Q3

REPORT INFORMATION
  Report Type: Report from Study
  Country: CA (occurrence: CA)
  Receive Date: 20130815
  Receipt Date: 20130815
  Transmission Date: 20140515
  Serious: Yes (Other)
  Sender: FDA-Public Use
  Company Number: CA-JNJFOC-20130805645

PATIENT
  Sex: Male

DRUGS (2)
  1. REMICADE [Suspect]
     Indication: CROHN^S DISEASE
     Dosage: 28TH INFUSION
     Route: 042
     Dates: start: 20130806
  2. REMICADE [Suspect]
     Indication: CROHN^S DISEASE
     Dosage: NUMBER 28 [SIC]
     Route: 042

REACTIONS (4)
  - Prostatism [Unknown]
  - Haematochezia [Unknown]
  - Flatulence [Unknown]
  - Abdominal distension [Unknown]
